FAERS Safety Report 6448033-8 (Version None)
Quarter: 2009Q4

REPORT INFORMATION
  Report Type: 
  Country: None (occurrence: None)
  Receive Date: 20091120
  Receipt Date: 20091113
  Transmission Date: 20100525
  Serious: Yes (Other)
  Sender: FDA-Public Use
  Company Number: US-ASTRAZENECA-2006UW25695

PATIENT
  Age: 17120 Day
  Sex: Male
  Weight: 124.7 kg

DRUGS (18)
  1. SEROQUEL [Suspect]
     Indication: SLEEP DISORDER THERAPY
     Route: 048
     Dates: start: 20020920
  2. SEROQUEL [Suspect]
     Route: 048
     Dates: start: 20021115
  3. SEROQUEL [Suspect]
     Route: 048
     Dates: start: 20021216, end: 20060101
  4. DILTIAZEM HCL [Concomitant]
     Route: 048
     Dates: start: 20020306
  5. DILTIAZEM HCL [Concomitant]
     Route: 048
     Dates: start: 20021115
  6. SPIRONOLACTONE [Concomitant]
     Route: 048
     Dates: start: 20020920
  7. SPIRONOLACTONE [Concomitant]
     Route: 048
     Dates: start: 20021115
  8. ATENOLOL [Concomitant]
     Route: 048
     Dates: start: 20020920
  9. ATENOLOL [Concomitant]
     Route: 048
     Dates: start: 20021115
  10. ATIVAN [Concomitant]
     Dates: start: 20061115
  11. ATIVAN [Concomitant]
     Dates: start: 20061213
  12. CARDURA [Concomitant]
  13. PREVACID [Concomitant]
  14. NEURONTIN [Concomitant]
  15. TOPROL-XL [Concomitant]
  16. ALPRAZOLAM [Concomitant]
     Dosage: 0.5 MG TAKE 1 TABLET THREE TIMES
     Route: 048
     Dates: start: 20020306
  17. RANITIDINE [Concomitant]
     Route: 048
     Dates: start: 20021101
  18. PROPOXYPHENE HCL CAP [Concomitant]
     Route: 048

REACTIONS (3)
  - DIABETES MELLITUS [None]
  - NEUROPATHY PERIPHERAL [None]
  - TYPE 2 DIABETES MELLITUS [None]
